FAERS Safety Report 11161438 (Version 1)
Quarter: 2015Q2

REPORT INFORMATION
  Report Type: Spontaneous
  Country: US (occurrence: US)
  Receive Date: 20150604
  Receipt Date: 20150604
  Transmission Date: 20150821
  Serious: No
  Sender: FDA-Public Use
  Company Number: US-SA-2014SA091840

PATIENT
  Age: 82 Year
  Sex: Male

DRUGS (3)
  1. LANTUS [Suspect]
     Active Substance: INSULIN GLARGINE
     Indication: PRODUCT USED FOR UNKNOWN INDICATION
     Route: 065
  2. LANTUS SOLOSTAR [Suspect]
     Active Substance: INSULIN GLARGINE
     Indication: TYPE 2 DIABETES MELLITUS
     Dosage: DOSE DEPENDS ON HIS BG LEVEL
     Route: 065
     Dates: start: 2013
  3. SOLOSTAR [Concomitant]
     Active Substance: DEVICE

REACTIONS (7)
  - Blood pressure decreased [Unknown]
  - Blood glucose fluctuation [Unknown]
  - Expired product administered [Unknown]
  - Peripheral swelling [Unknown]
  - Visual impairment [Unknown]
  - Hearing impaired [Unknown]
  - Blood glucose increased [Unknown]
